FAERS Safety Report 19762848 (Version 1)
Quarter: 2021Q3

REPORT INFORMATION
  Report Type: Spontaneous
  Country: FR (occurrence: FR)
  Receive Date: 20210830
  Receipt Date: 20210830
  Transmission Date: 20211014
  Serious: Yes (Death)
  Sender: FDA-Public Use
  Company Number: FR-NORTHSTAR HEALTHCARE HOLDINGS-FR-2021NSR000044

PATIENT
  Age: 42 Year
  Sex: Male

DRUGS (7)
  1. LIDOCAINE. [Suspect]
     Active Substance: LIDOCAINE
     Indication: PRODUCT USED FOR UNKNOWN INDICATION
     Dosage: UNK
     Route: 065
  2. CETIRIZINE [Suspect]
     Active Substance: CETIRIZINE HYDROCHLORIDE
     Indication: PRODUCT USED FOR UNKNOWN INDICATION
     Route: 065
  3. HYDROXYZINE HYDROCHLORIDE. [Suspect]
     Active Substance: HYDROXYZINE HYDROCHLORIDE
     Indication: PRODUCT USED FOR UNKNOWN INDICATION
     Dosage: UNK
     Route: 065
  4. BROMAZEPAM [Suspect]
     Active Substance: BROMAZEPAM
     Indication: PRODUCT USED FOR UNKNOWN INDICATION
     Route: 065
  5. COCAINE [Suspect]
     Active Substance: COCAINE
     Indication: PRODUCT USED FOR UNKNOWN INDICATION
     Dosage: UNK
     Route: 045
  6. LEVAMISOLE [Suspect]
     Active Substance: LEVAMISOLE
     Indication: PRODUCT USED FOR UNKNOWN INDICATION
     Route: 065
  7. CITALOPRAM                         /00582603/ [Suspect]
     Active Substance: CITALOPRAM HYDROCHLORIDE
     Indication: DEPRESSION
     Dosage: UNK
     Route: 065

REACTIONS (3)
  - Completed suicide [Fatal]
  - Arterial catheterisation [Fatal]
  - Toxicity to various agents [Fatal]
